FAERS Safety Report 20038157 (Version 1)
Quarter: 2021Q4

REPORT INFORMATION
  Report Type: Spontaneous
  Country: US (occurrence: US)
  Receive Date: 20211105
  Receipt Date: 20211105
  Transmission Date: 20220303
  Serious: Yes (Other)
  Sender: FDA-Public Use
  Company Number: US-ELI_LILLY_AND_COMPANY-US202110011814

PATIENT
  Sex: Female

DRUGS (3)
  1. HUMATROPE [Suspect]
     Active Substance: SOMATROPIN
     Indication: Bone disorder
     Dosage: UNK UNK, UNKNOWN
     Route: 065
     Dates: start: 1998
  2. HUMATROPE [Suspect]
     Active Substance: SOMATROPIN
     Indication: Disease susceptibility
     Dosage: UNK UNK, UNKNOWN
     Route: 065
  3. HUMATROPE [Suspect]
     Active Substance: SOMATROPIN
     Dosage: UNK UNK, UNKNOWN
     Route: 065

REACTIONS (2)
  - Osteoarthritis [Unknown]
  - Product preparation issue [Unknown]

NARRATIVE: CASE EVENT DATE: 20160101
